FAERS Safety Report 9418186 (Version 2)
Quarter: 2013Q3

REPORT INFORMATION
  Report Type: Spontaneous
  Country: US (occurrence: US)
  Receive Date: 20130724
  Receipt Date: 20130808
  Transmission Date: 20140515
  Serious: No
  Sender: FDA-Public Use
  Company Number: US-BAXTER-2013BAX020599

PATIENT
  Age: 49 Year
  Sex: Female
  Weight: 92.3 kg

DRUGS (21)
  1. GAMMAGARD LIQUID [Suspect]
     Indication: IMMUNODEFICIENCY COMMON VARIABLE
     Route: 058
     Dates: start: 20130610, end: 20130610
  2. GAMMAGARD LIQUID [Suspect]
     Route: 058
     Dates: start: 20130527, end: 20130527
  3. GAMMAGARD LIQUID [Suspect]
     Route: 058
     Dates: start: 20130603, end: 20130603
  4. GAMMAGARD LIQUID [Suspect]
     Route: 058
     Dates: start: 20130603, end: 20130603
  5. GAMMAGARD LIQUID [Suspect]
     Route: 058
     Dates: start: 20130610, end: 20130610
  6. GAMMAGARD LIQUID [Suspect]
     Route: 058
     Dates: start: 20130527, end: 20130527
  7. GAMMAGARD LIQUID [Suspect]
     Route: 058
     Dates: start: 20130623, end: 20130623
  8. GAMMAGARD LIQUID [Suspect]
     Route: 058
     Dates: start: 20130623, end: 20130623
  9. GAMMAGARD LIQUID [Suspect]
     Route: 058
     Dates: start: 20130630, end: 20130630
  10. GAMMAGARD LIQUID [Suspect]
     Route: 058
     Dates: start: 20130630, end: 20130630
  11. GAMMAGARD LIQUID [Suspect]
     Route: 058
     Dates: start: 20130715, end: 20130715
  12. GAMMAGARD LIQUID [Suspect]
     Route: 058
     Dates: start: 20130715, end: 20130715
  13. GAMMAGARD LIQUID [Suspect]
     Route: 058
     Dates: start: 20130729, end: 20130729
  14. GAMMAGARD LIQUID [Suspect]
     Route: 058
     Dates: start: 20130729, end: 20130729
  15. SKIN PREP [Concomitant]
     Indication: PREMEDICATION
     Route: 061
     Dates: start: 20130527, end: 20130527
  16. SKIN PREP [Concomitant]
     Route: 061
     Dates: start: 20130603, end: 20130603
  17. SKIN PREP [Concomitant]
     Route: 061
     Dates: start: 20130610, end: 20130610
  18. SKIN PREP [Concomitant]
     Route: 061
     Dates: start: 20130623, end: 20130623
  19. SKIN PREP [Concomitant]
     Route: 061
     Dates: start: 20130630, end: 20130630
  20. SKIN PREP [Concomitant]
     Route: 061
     Dates: start: 20130715, end: 20130715
  21. SKIN PREP [Concomitant]
     Route: 061
     Dates: start: 20130729, end: 20130729

REACTIONS (6)
  - Infusion site swelling [Recovered/Resolved]
  - Infusion site erythema [Recovered/Resolved]
  - Infusion site pain [Recovered/Resolved]
  - Vascular injury [Recovered/Resolved]
  - Infusion site bruising [Unknown]
  - Injection site pallor [Unknown]
